FAERS Safety Report 5708930-5 (Version None)
Quarter: 2008Q2

REPORT INFORMATION
  Report Type: 
  Country: None (occurrence: None)
  Receive Date: 20080416
  Receipt Date: 20080408
  Transmission Date: 20081010
  Serious: Yes (Other)
  Sender: FDA-Public Use
  Company Number: 2008008776

PATIENT

DRUGS (1)
  1. LISTERINE WHITENING QUICK DISSOLVING STRIPS (NO ACTIVE INGREDIENT) [Suspect]
     Dosage: 6 STRIPS UNSPECIFIED, ORAL
     Route: 048

REACTIONS (3)
  - CAUSTIC INJURY [None]
  - GINGIVAL PAIN [None]
  - LIP PAIN [None]
